FAERS Safety Report 19997358 (Version 2)
Quarter: 2021Q4

REPORT INFORMATION
  Report Type: Spontaneous
  Country: US (occurrence: US)
  Receive Date: 20211026
  Receipt Date: 20211112
  Transmission Date: 20220303
  Serious: No
  Sender: FDA-Public Use
  Company Number: US-CELGENE-USA-20211005252

PATIENT
  Sex: Male

DRUGS (20)
  1. REVLIMID [Suspect]
     Active Substance: LENALIDOMIDE
     Indication: Plasma cell myeloma
     Dosage: 25 MILLIGRAM
     Route: 048
     Dates: start: 202101
  2. REVLIMID [Suspect]
     Active Substance: LENALIDOMIDE
     Dosage: 20 MILLIGRAM
     Route: 048
     Dates: start: 202104
  3. REVLIMID [Suspect]
     Active Substance: LENALIDOMIDE
     Dosage: 15 MILLIGRAM
     Route: 048
     Dates: start: 202107
  4. ACETAMINOPHEN [Concomitant]
     Active Substance: ACETAMINOPHEN
     Indication: Product used for unknown indication
     Route: 048
  5. ASPIRIN [Concomitant]
     Active Substance: ASPIRIN
     Indication: Product used for unknown indication
     Route: 048
  6. CICLOPIROX [Concomitant]
     Active Substance: CICLOPIROX
     Indication: Product used for unknown indication
     Route: 061
  7. CLONIDINE [Concomitant]
     Active Substance: CLONIDINE
     Indication: Product used for unknown indication
     Route: 048
  8. CYANOCOBALAMIN [Concomitant]
     Active Substance: CYANOCOBALAMIN
     Indication: Product used for unknown indication
     Dosage: 1000 MILLIGRAM/MILLILITERS
     Route: 030
  9. DICLOFENAC SODIUM [Concomitant]
     Active Substance: DICLOFENAC SODIUM
     Indication: Product used for unknown indication
     Route: 048
  10. ERGOCALCIFEROL [Concomitant]
     Active Substance: ERGOCALCIFEROL
     Indication: Product used for unknown indication
     Route: 048
  11. FUROSEMIDE [Concomitant]
     Active Substance: FUROSEMIDE
     Indication: Product used for unknown indication
     Dosage: 60 MILLIGRAM
     Route: 048
  12. LAMOTRIGINE [Concomitant]
     Active Substance: LAMOTRIGINE
     Indication: Product used for unknown indication
     Route: 048
  13. VITAMINS [Concomitant]
     Active Substance: VITAMINS
     Indication: Product used for unknown indication
     Route: 048
  14. NITROGLYCERIN [Concomitant]
     Active Substance: NITROGLYCERIN
     Indication: Product used for unknown indication
     Route: 060
  15. PROCHLORPERAZINE [Concomitant]
     Active Substance: PROCHLORPERAZINE
     Indication: Product used for unknown indication
     Route: 048
  16. ROSUVASTATIN [Concomitant]
     Active Substance: ROSUVASTATIN
     Indication: Product used for unknown indication
     Route: 048
  17. SERTRALINE [Concomitant]
     Active Substance: SERTRALINE HYDROCHLORIDE
     Indication: Product used for unknown indication
     Route: 048
  18. FAMCICLOVIR [Concomitant]
     Active Substance: FAMCICLOVIR
     Indication: Product used for unknown indication
     Route: 048
  19. DEXAMETHASONE [Concomitant]
     Active Substance: DEXAMETHASONE
     Indication: Product used for unknown indication
     Route: 048
  20. DEXAMETHASONE [Concomitant]
     Active Substance: DEXAMETHASONE
     Route: 048

REACTIONS (1)
  - Vision blurred [Unknown]
